FAERS Safety Report 8313877-4 (Version None)
Quarter: 2012Q2

REPORT INFORMATION
  Report Type: 
  Country: None (occurrence: None)
  Receive Date: 20120426
  Receipt Date: 20120416
  Transmission Date: 20120825
  Serious: Yes (Other)
  Sender: FDA-Public Use
  Company Number: US-JNJFOC-20120408010

PATIENT
  Sex: Male
  Weight: 92.99 kg

DRUGS (6)
  1. INVEGA SUSTENNA [Suspect]
     Indication: BIPOLAR DISORDER
     Route: 030
     Dates: start: 20110801
  2. AN UNKNOWN MEDICATION [Suspect]
     Indication: GASTROOESOPHAGEAL REFLUX DISEASE
     Route: 065
     Dates: start: 20120101
  3. INVEGA SUSTENNA [Suspect]
     Route: 030
     Dates: start: 20120301
  4. INVEGA SUSTENNA [Suspect]
     Indication: ILL-DEFINED DISORDER
     Route: 030
     Dates: start: 20110801
  5. INVEGA SUSTENNA [Suspect]
     Route: 030
     Dates: start: 20120301
  6. DEPAKOTE [Concomitant]
     Indication: PRODUCT USED FOR UNKNOWN INDICATION
     Route: 048
     Dates: start: 20090101, end: 20120301

REACTIONS (5)
  - ADVERSE EVENT [None]
  - GASTROOESOPHAGEAL REFLUX DISEASE [None]
  - ASTHENIA [None]
  - INJECTION SITE PAIN [None]
  - MALAISE [None]
